FAERS Safety Report 7151411-5 (Version None)
Quarter: 2010Q4

REPORT INFORMATION
  Report Type: 
  Country: None (occurrence: None)
  Receive Date: 20101210
  Receipt Date: 20101130
  Transmission Date: 20110411
  Serious: Yes (Hospitalization)
  Sender: FDA-Public Use
  Company Number: JP-MERCK-1011USA02179

PATIENT
  Age: 63 Year
  Sex: Male

DRUGS (12)
  1. PEPCID [Suspect]
     Indication: GASTRITIS PROPHYLAXIS
     Route: 065
     Dates: start: 20100818, end: 20100910
  2. ZYLORIC [Suspect]
     Indication: HYPERURICAEMIA
     Route: 065
     Dates: start: 20100906, end: 20100910
  3. ALEVIATIN [Concomitant]
     Indication: EPILEPSY
     Route: 065
     Dates: start: 20100818, end: 20100831
  4. KEFLEX [Concomitant]
     Indication: THROMBOPHLEBITIS
     Route: 065
     Dates: start: 20100820, end: 20100831
  5. DIART [Concomitant]
     Indication: THROMBOPHLEBITIS
     Route: 065
     Dates: start: 20100819
  6. BIOFERMIN [Concomitant]
     Indication: GASTRITIS PROPHYLAXIS
     Route: 065
     Dates: start: 20100818
  7. WARFARIN [Concomitant]
     Indication: THROMBOPHLEBITIS
     Route: 065
     Dates: start: 20100903
  8. DEPAKENE [Concomitant]
     Indication: EPILEPSY
     Route: 065
     Dates: start: 20100901
  9. SULBACILLIN [Concomitant]
     Indication: PNEUMONIA ASPIRATION
     Route: 065
     Dates: start: 20100816, end: 20100819
  10. CEFAMEZIN [Concomitant]
     Route: 065
     Dates: start: 20100825, end: 20100826
  11. ALEVIATIN [Concomitant]
     Route: 065
     Dates: start: 20100816, end: 20100819
  12. NEUTROGIN [Concomitant]
     Indication: NEUTROPENIA
     Route: 065
     Dates: start: 20100910, end: 20100915

REACTIONS (1)
  - FEBRILE NEUTROPENIA [None]
